FAERS Safety Report 13125573 (Version 1)
Quarter: 2017Q1

REPORT INFORMATION
  Report Type: Spontaneous
  Country: US (occurrence: US)
  Receive Date: 20170117
  Receipt Date: 20170117
  Transmission Date: 20170428
  Serious: Yes (Hospitalization, Disabling, Other)
  Sender: FDA-Public Use
  Company Number: None

PATIENT
  Age: 16 Year
  Sex: Female
  Weight: 47.25 kg

DRUGS (5)
  1. TRILEPTAL [Suspect]
     Active Substance: OXCARBAZEPINE
     Indication: EPILEPSY
  2. ONFI [Suspect]
     Active Substance: CLOBAZAM
     Indication: EPILEPSY
  3. DIASTAT [Concomitant]
     Active Substance: DIAZEPAM
  4. ZYRTEC [Concomitant]
     Active Substance: CETIRIZINE HYDROCHLORIDE
  5. ZONEGRAN [Concomitant]
     Active Substance: ZONISAMIDE

REACTIONS (4)
  - Abnormal behaviour [None]
  - Affective disorder [None]
  - Suicidal ideation [None]
  - Hallucinations, mixed [None]

NARRATIVE: CASE EVENT DATE: 20120101
